FAERS Safety Report 12401251 (Version 1)
Quarter: 2016Q2

REPORT INFORMATION
  Report Type: Spontaneous
  Country: US (occurrence: US)
  Receive Date: 20160525
  Receipt Date: 20160525
  Transmission Date: 20160815
  Serious: No
  Sender: FDA-Public Use
  Company Number: US-ELI_LILLY_AND_COMPANY-US201605004643

PATIENT
  Sex: Female

DRUGS (2)
  1. TRULICITY [Suspect]
     Active Substance: DULAGLUTIDE
     Indication: DIABETES MELLITUS
     Dosage: 1 DF, WEEKLY (1/W)
     Route: 065
     Dates: start: 20160412
  2. TRULICITY [Suspect]
     Active Substance: DULAGLUTIDE
     Dosage: 1 DF, WEEKLY (1/W)

REACTIONS (1)
  - Rash [Recovering/Resolving]
